FAERS Safety Report 10357078 (Version 2)
Quarter: 2017Q2

REPORT INFORMATION
  Report Type: Report from Study
  Country: US (occurrence: US)
  Receive Date: 20140801
  Receipt Date: 20170614
  Transmission Date: 20170829
  Serious: Yes (Other)
  Sender: FDA-Public Use
  Company Number: US-ROCHE-1440291

PATIENT

DRUGS (5)
  1. OXALIPLATIN. [Suspect]
     Active Substance: OXALIPLATIN
     Indication: RECTAL CANCER
     Dosage: OVER 2 HRS INFUSION FOR 8 CYCLES
     Route: 042
  2. 5-FU [Suspect]
     Active Substance: FLUOROURACIL
     Dosage: 400 MG/M2 IV FOLLOWED 5-FU 2400 MG/M2 IV BY CONTINUOUS OVER 46 HOURS Q 14 DAYS X 8 CYCLES
     Route: 042
  3. FOLINIC ACID [Suspect]
     Active Substance: LEUCOVORIN
     Indication: RECTAL CANCER
     Dosage: OVER 2 HOURS
     Route: 042
  4. 5-FU [Suspect]
     Active Substance: FLUOROURACIL
     Indication: RECTAL CANCER
     Dosage: 400 MG/M2 IV FOLLOWED 5-FU 2400 MG/M2 IV BY CONTINUOUS OVER 46 HOURS Q 14 DAYS X 8 CYCLES
     Route: 042
  5. CAPECITABINE. [Suspect]
     Active Substance: CAPECITABINE
     Indication: RECTAL CANCER
     Dosage: 825MG/M2 TWICW DALY (BID), 5 DAYS PER WEEK
     Route: 065

REACTIONS (15)
  - Neutropenia [Unknown]
  - Decreased appetite [Unknown]
  - Infection [Unknown]
  - Dehydration [Unknown]
  - Diarrhoea [Unknown]
  - Renal impairment [Unknown]
  - Thrombocytopenia [Unknown]
  - Proctalgia [Unknown]
  - Transient ischaemic attack [Unknown]
  - Vomiting [Unknown]
  - Fatigue [Unknown]
  - Neuropathy peripheral [Unknown]
  - Pain [Unknown]
  - Electrolyte imbalance [Unknown]
  - Nausea [Unknown]
